FAERS Safety Report 8501188-3 (Version None)
Quarter: 2012Q3

REPORT INFORMATION
  Report Type: 
  Country: None (occurrence: None)
  Receive Date: 20120710
  Receipt Date: 20120702
  Transmission Date: 20120928
  Serious: Yes (Other)
  Sender: FDA-Public Use
  Company Number: US-BAYER-201041910NA

PATIENT
  Age: 45 Year
  Sex: Male
  Weight: 94.785 kg

DRUGS (19)
  1. PROTAMINE SULFATE [Concomitant]
     Dosage: UNK
     Dates: start: 20050713, end: 20050713
  2. LEVOPHED [Concomitant]
     Dosage: UNK
     Dates: start: 20050713
  3. IOPAMIDOL [Concomitant]
     Indication: CATHETERISATION CARDIAC
     Dosage: 106 ML, UNK
     Dates: start: 20050711
  4. ETOMIDATE [Concomitant]
     Dosage: UNK
     Dates: start: 20050713, end: 20050713
  5. MANNITOL [Concomitant]
     Dosage: UNK
     Dates: start: 20050713, end: 20050713
  6. FENTANYL [Concomitant]
  7. HEPARIN [Concomitant]
     Dosage: UNK
     Dates: start: 20050713, end: 20050713
  8. AMIODARONE HCL [Concomitant]
     Dosage: UNK
     Dates: start: 20050713
  9. ZINACEF [Concomitant]
     Dosage: 1.5 G, UNK
     Dates: start: 20050713, end: 20050713
  10. TRASYLOL [Suspect]
     Indication: CORONARY ARTERY BYPASS
     Dosage: UNK
     Route: 042
     Dates: start: 20050713
  11. VERSED [Concomitant]
     Dosage: UNK
     Dates: start: 20050713, end: 20050713
  12. VANCOMYCIN [Concomitant]
     Dosage: 1 G, UNK
     Dates: start: 20050713, end: 20050713
  13. RED BLOOD CELLS [Concomitant]
     Dosage: 900 CC
     Dates: start: 20050713
  14. LASIX [Concomitant]
     Dosage: 40 MG, UNK
     Dates: start: 20050713, end: 20050713
  15. SOLU-MEDROL [Concomitant]
     Dosage: 1 G, UNK
     Dates: start: 20050713, end: 20050713
  16. RED BLOOD CELLS [Concomitant]
     Dosage: 1 U, IN PRIME
     Dates: start: 20050713
  17. MILRINONE LACTATE [Concomitant]
     Dosage: UNK
     Dates: start: 20050713
  18. DOBUTAMINE HCL [Concomitant]
     Dosage: UNK
     Dates: start: 20050713
  19. VASOPRESSIN [Concomitant]
     Dosage: UNK
     Dates: start: 20050713

REACTIONS (14)
  - RENAL INJURY [None]
  - PAIN [None]
  - DEPRESSION [None]
  - INJURY [None]
  - FEAR [None]
  - ANHEDONIA [None]
  - ANXIETY [None]
  - GENERAL PHYSICAL HEALTH DETERIORATION [None]
  - RENAL FAILURE [None]
  - EMOTIONAL DISTRESS [None]
  - FEAR OF DEATH [None]
  - MULTI-ORGAN FAILURE [None]
  - UNEVALUABLE EVENT [None]
  - NERVOUSNESS [None]
